FAERS Safety Report 8218083-X (Version None)
Quarter: 2012Q1

REPORT INFORMATION
  Report Type: 
  Country: None (occurrence: None)
  Receive Date: 20120319
  Receipt Date: 20120309
  Transmission Date: 20120608
  Serious: Yes (Death, Hospitalization)
  Sender: FDA-Public Use
  Company Number: US-PFIZER INC-K200900770

PATIENT
  Age: 57 Year
  Sex: Female

DRUGS (10)
  1. LEVOXYL [Suspect]
     Dosage: 100 UG, 1X/DAY
  2. CETIRIZINE HYDROCHLORIDE [Concomitant]
     Indication: ASTHMA
     Dosage: 10 MG, 1X/DAY
  3. ACETAMINOPHEN [Interacting]
     Dosage: 1 G, WEEKLY
  4. SUNITINIB MALATE [Interacting]
     Dosage: 50 MG, 1X/DAY
     Dates: start: 20040701
  5. TYLENOL PM [Interacting]
     Indication: INSOMNIA
     Dosage: 500 MG, 1X/DAY
  6. MONTELUKAST SODIUM [Concomitant]
     Indication: ASTHMA
     Dosage: 10 MG, 1X/DAY
  7. ACETAMINOPHEN [Interacting]
     Indication: HEADACHE
     Dosage: 2 G, WEEKLY
  8. ALBUTEROL [Concomitant]
     Indication: ASTHMA
     Dosage: UNK
     Route: 055
  9. LEVOXYL [Suspect]
     Indication: HYPOTHYROIDISM
     Dosage: 150 UG, 1X/DAY
  10. LEVOXYL [Suspect]
     Dosage: 50 UG, 1X/DAY

REACTIONS (8)
  - ACUTE HEPATIC FAILURE [None]
  - DRUG INTERACTION [None]
  - DIARRHOEA [None]
  - DECREASED APPETITE [None]
  - ASTHENIA [None]
  - NAUSEA [None]
  - RENAL FAILURE [None]
  - METABOLIC ACIDOSIS [None]
